FAERS Safety Report 21522193 (Version 2)
Quarter: 2022Q4

REPORT INFORMATION
  Report Type: Report from Study
  Country: BR (occurrence: BR)
  Receive Date: 20221028
  Receipt Date: 20221111
  Transmission Date: 20230113
  Serious: Yes (Hospitalization)
  Sender: FDA-Public Use
  Company Number: BR-BIOGEN-2022BI01164731

PATIENT
  Sex: Female

DRUGS (2)
  1. TYSABRI [Suspect]
     Active Substance: NATALIZUMAB
     Indication: Paternal exposure timing unspecified
     Route: 050
     Dates: start: 20210618, end: 202201
  2. TECFIDERA [Suspect]
     Active Substance: DIMETHYL FUMARATE
     Indication: Paternal exposure timing unspecified
     Route: 050

REACTIONS (2)
  - Neonatal pneumonia [Unknown]
  - Paternal exposure before pregnancy [Recovered/Resolved]
